FAERS Safety Report 4690980-1 (Version None)
Quarter: 2005Q2

REPORT INFORMATION
  Report Type: 
  Country: None (occurrence: None)
  Receive Date: 20050610
  Receipt Date: 20050526
  Transmission Date: 20051028
  Serious: Yes (Death)
  Sender: FDA-Public Use
  Company Number: 2005-01154

PATIENT
  Sex: Male

DRUGS (5)
  1. VELCADE [Suspect]
     Indication: MULTIPLE MYELOMA
  2. ............ [Concomitant]
  3. ........................ [Concomitant]
  4. ................. [Concomitant]
  5. ................ [Concomitant]

REACTIONS (1)
  - MYOCARDIAL INFARCTION [None]
